FAERS Safety Report 10087303 (Version 2)
Quarter: 2014Q2

REPORT INFORMATION
  Report Type: Spontaneous
  Country: US (occurrence: US)
  Receive Date: 20140418
  Receipt Date: 20140418
  Transmission Date: 20141212
  Serious: Yes (Death, Hospitalization)
  Sender: FDA-Public Use
  Company Number: US-ACTELION-A-US2014-95836

PATIENT
  Age: 72 Year
  Sex: Female

DRUGS (12)
  1. OPSUMIT [Suspect]
     Indication: PULMONARY ARTERIAL HYPERTENSION
     Dosage: 10 MG, QD
     Route: 048
     Dates: start: 20140114
  2. LOVASTATIN [Concomitant]
  3. REMODULIN [Concomitant]
  4. TORSEMIDE [Concomitant]
  5. PREDNISONE [Concomitant]
  6. VENLAFAXINE [Concomitant]
  7. TRAZODONE [Concomitant]
  8. METOPROLOL [Concomitant]
  9. OMEPRAZOLE [Concomitant]
  10. POTASSIUM CHLORIDE [Concomitant]
  11. NITROGLYCERIN [Concomitant]
  12. SPIRIVA HANDIHALER [Concomitant]

REACTIONS (2)
  - Pulmonary arterial hypertension [Fatal]
  - Disease progression [Fatal]
